FAERS Safety Report 4686551-3 (Version None)
Quarter: 2005Q2

REPORT INFORMATION
  Report Type: 
  Country: None (occurrence: None)
  Receive Date: 20050607
  Receipt Date: 20050524
  Transmission Date: 20051028
  Serious: Yes (Other)
  Sender: FDA-Public Use
  Company Number: 2005079366

PATIENT
  Age: 31 Year
  Sex: Male
  Weight: 116.1208 kg

DRUGS (13)
  1. CELEBREX [Suspect]
     Indication: ARTHRITIS
     Dosage: 200 MG (200 MG, 1 IN 1 D), ORAL
     Route: 048
     Dates: start: 20050301, end: 20050509
  2. MOTRIN [Suspect]
     Indication: ILL-DEFINED DISORDER
     Dosage: ORAL
     Route: 048
  3. ZANTAC [Concomitant]
  4. NAPROSYN [Concomitant]
  5. PROTONIX [Concomitant]
  6. TYLENOL W/ CODEINE NO. 3 [Concomitant]
  7. ACCUPRIL [Concomitant]
  8. PLENDIL [Concomitant]
  9. DEPAKOTE [Concomitant]
  10. PHENOBARBITAL TAB [Concomitant]
  11. LIPITOR [Concomitant]
  12. HYDROCHLOROTHIAZIDE [Concomitant]
  13. LOPRESSOR [Concomitant]

REACTIONS (3)
  - CYSTITIS INTERSTITIAL [None]
  - KIDNEY INFECTION [None]
  - STOMACH DISCOMFORT [None]
